FAERS Safety Report 8947623 (Version 1)
Quarter: 2012Q4

REPORT INFORMATION
  Report Type: 
  Country: US (occurrence: US)
  Receive Date: 20121205
  Receipt Date: 20121205
  Transmission Date: 20130627
  Serious: No
  Sender: FDA-Public Use
  Company Number: US-BAYER-2012-121211

PATIENT
  Age: 24 Year
  Sex: Male

DRUGS (1)
  1. GADAVIST [Suspect]
     Indication: MRI BRAIN
     Dosage: 10 ml, UNK
     Route: 042

REACTIONS (2)
  - Dysgeusia [Recovered/Resolved]
  - Vomiting [Recovered/Resolved]
